FAERS Safety Report 18224153 (Version 1)
Quarter: 2020Q3

REPORT INFORMATION
  Report Type: Spontaneous
  Country: US (occurrence: US)
  Receive Date: 20200902
  Receipt Date: 20200902
  Transmission Date: 20201103
  Serious: No
  Sender: FDA-Public Use
  Company Number: US-009507513-2008USA014552

PATIENT
  Sex: Female
  Weight: 168.71 kg

DRUGS (1)
  1. NEXPLANON [Suspect]
     Active Substance: ETONOGESTREL
     Dosage: 1 IMPLANT
     Route: 059
     Dates: start: 201708

REACTIONS (5)
  - Device breakage [Not Recovered/Not Resolved]
  - Circumstance or information capable of leading to medication error [Unknown]
  - Complication of device removal [Not Recovered/Not Resolved]
  - Weight increased [Unknown]
  - Incorrect product administration duration [Unknown]

NARRATIVE: CASE EVENT DATE: 20200827
